FAERS Safety Report 4276106-7 (Version None)
Quarter: 2004Q1

REPORT INFORMATION
  Report Type: 
  Country: None (occurrence: None)
  Receive Date: 20040121
  Receipt Date: 20030910
  Transmission Date: 20041129
  Serious: No
  Sender: FDA-Public Use
  Company Number: US-GLAXOSMITHKLINE-A0425494A

PATIENT
  Age: 37 Year
  Sex: Female
  Weight: 50 kg

DRUGS (13)
  1. VALTREX [Suspect]
     Dosage: 500MG TWICE PER DAY
     Route: 048
     Dates: start: 20030726, end: 20030728
  2. BACLOFEN [Concomitant]
     Route: 048
  3. LAMICTAL [Concomitant]
     Route: 048
  4. PAXIL [Concomitant]
     Route: 048
  5. REBIF [Concomitant]
  6. FIORINAL [Concomitant]
  7. ZOMIG [Concomitant]
  8. SONATA [Concomitant]
     Route: 048
  9. MULTI-VITAMINS [Concomitant]
  10. PANTHENOL [Concomitant]
  11. CALTRATE [Concomitant]
  12. MOTRIN [Concomitant]
  13. BAYER ASPIRIN EXTRA STRENGTH [Concomitant]

REACTIONS (4)
  - EYE MOVEMENT DISORDER [None]
  - FEELING JITTERY [None]
  - MIDDLE INSOMNIA [None]
  - NERVOUSNESS [None]
